FAERS Safety Report 4345251-X (Version None)
Quarter: 2004Q2

REPORT INFORMATION
  Report Type: 
  Country: None (occurrence: None)
  Receive Date: 20040422
  Receipt Date: 20040422
  Transmission Date: 20050107
  Serious: No
  Sender: FDA-Public Use
  Company Number: None

PATIENT
  Sex: Female

DRUGS (1)
  1. PERCOCET [Suspect]
     Dosage: ONE Q 4 H PO PRN
     Route: 048

REACTIONS (2)
  - HERPES ZOSTER [None]
  - PAIN [None]
